FAERS Safety Report 19619503 (Version 1)
Quarter: 2021Q3

REPORT INFORMATION
  Report Type: Spontaneous
  Country: US (occurrence: US)
  Receive Date: 20210727
  Receipt Date: 20210727
  Transmission Date: 20211014
  Serious: Yes (Hospitalization)
  Sender: FDA-Public Use
  Company Number: None

PATIENT
  Sex: Female

DRUGS (3)
  1. LOVENOX [Concomitant]
     Active Substance: ENOXAPARIN SODIUM
  2. PRENATAL [Concomitant]
     Active Substance: VITAMINS
  3. CIMZIA [Suspect]
     Active Substance: CERTOLIZUMAB PEGOL
     Indication: CROHN^S DISEASE
     Route: 058
     Dates: start: 20181012

REACTIONS (5)
  - Quality of life decreased [None]
  - Maternal exposure during pregnancy [None]
  - Crohn^s disease [None]
  - Joint swelling [None]
  - Live birth [None]
